FAERS Safety Report 7308434-2 (Version None)
Quarter: 2011Q1

REPORT INFORMATION
  Report Type: 
  Country: None (occurrence: None)
  Receive Date: 20110223
  Receipt Date: 20101119
  Transmission Date: 20110831
  Serious: No
  Sender: FDA-Public Use
  Company Number: US-BAYER-2010-006071

PATIENT
  Sex: Female

DRUGS (3)
  1. MIRENA [Suspect]
     Indication: CONTRACEPTION
     Dosage: 20 ?G/D, CONT
     Route: 015
     Dates: start: 20100714, end: 20100811
  2. MIRENA [Suspect]
     Indication: DYSMENORRHOEA
  3. MIRENA [Suspect]
     Indication: MENORRHAGIA

REACTIONS (3)
  - PELVIC PAIN [None]
  - ABDOMINAL PAIN LOWER [None]
  - FEELING ABNORMAL [None]
